FAERS Safety Report 7490233-2 (Version None)
Quarter: 2011Q2

REPORT INFORMATION
  Report Type: 
  Country: None (occurrence: None)
  Receive Date: 20110519
  Receipt Date: 20110504
  Transmission Date: 20111010
  Serious: Yes (Other)
  Sender: FDA-Public Use
  Company Number: CA-JNJFOC-20110503112

PATIENT
  Sex: Male
  Weight: 92 kg

DRUGS (6)
  1. METHOTREXATE [Concomitant]
  2. ASPIRIN [Concomitant]
  3. PRILOSEC [Concomitant]
  4. FOLIC ACID [Concomitant]
  5. REMICADE [Suspect]
     Indication: RHEUMATOID ARTHRITIS
     Route: 042
     Dates: start: 19891201
  6. DOXYCILIN [Concomitant]

REACTIONS (1)
  - TOOTHACHE [None]
